FAERS Safety Report 24525085 (Version 1)
Quarter: 2024Q4

REPORT INFORMATION
  Report Type: Spontaneous
  Country: US (occurrence: US)
  Receive Date: 20241019
  Receipt Date: 20241019
  Transmission Date: 20250114
  Serious: No
  Sender: SANOFI AVENTIS
  Company Number: US-SA-2024SA296497

PATIENT
  Age: 25 Year
  Sex: Male

DRUGS (1)
  1. DUPIXENT [Suspect]
     Active Substance: DUPILUMAB
     Indication: Dermatitis
     Dosage: 300 MG, QOW
     Route: 058

REACTIONS (7)
  - Blister [Unknown]
  - Dry skin [Unknown]
  - Skin exfoliation [Unknown]
  - Dermatitis [Unknown]
  - Injection site erythema [Unknown]
  - Injection site pruritus [Unknown]
  - Product use in unapproved indication [Unknown]
